FAERS Safety Report 9228916 (Version 1)
Quarter: 2013Q2

REPORT INFORMATION
  Report Type: Spontaneous
  Country: US (occurrence: US)
  Receive Date: 20130412
  Receipt Date: 20130412
  Transmission Date: 20140414
  Serious: Yes (Hospitalization, Other)
  Sender: FDA-Public Use
  Company Number: US-009507513-0805USA00696

PATIENT
  Sex: Female

DRUGS (2)
  1. FOSAMAX [Suspect]
     Indication: OSTEOPOROSIS
     Dosage: 70 MG, QW
     Route: 048
     Dates: start: 200101, end: 20050915
  2. FOSAMAX [Suspect]
     Dosage: 70 MG, QW
     Route: 048
     Dates: end: 2007

REACTIONS (49)
  - Intervertebral disc protrusion [Unknown]
  - Back disorder [Unknown]
  - Suicidal ideation [Unknown]
  - Breast cancer female [Unknown]
  - Pneumonia [Unknown]
  - Multiple sclerosis [Unknown]
  - Osteonecrosis of jaw [Unknown]
  - Trismus [Not Recovered/Not Resolved]
  - Oral discomfort [Unknown]
  - Weight decreased [Unknown]
  - Mastication disorder [Unknown]
  - Temporomandibular joint syndrome [Not Recovered/Not Resolved]
  - Joint range of motion decreased [Unknown]
  - Edentulous [Unknown]
  - Rheumatoid arthritis [Unknown]
  - Inflammatory bowel disease [Unknown]
  - Tooth disorder [Not Recovered/Not Resolved]
  - Depression [Unknown]
  - Tooth abscess [Unknown]
  - Dental caries [Not Recovered/Not Resolved]
  - Tooth fracture [Not Recovered/Not Resolved]
  - Gingival pain [Not Recovered/Not Resolved]
  - Tooth loss [Unknown]
  - Stress [Unknown]
  - Fibromyalgia [Unknown]
  - Myofascial pain syndrome [Unknown]
  - Dry mouth [Unknown]
  - Tooth abscess [Unknown]
  - Tooth abscess [Unknown]
  - Weight increased [Unknown]
  - Anxiety [Unknown]
  - Eating disorder [Unknown]
  - Body dysmorphic disorder [Unknown]
  - Stress [Unknown]
  - Sleep disorder [Unknown]
  - Panic attack [Unknown]
  - Major depression [Unknown]
  - Lung neoplasm [Unknown]
  - Overdose [Unknown]
  - Anxiety [Unknown]
  - Bronchitis [Unknown]
  - Palpitations [Unknown]
  - Obsessive-compulsive disorder [Unknown]
  - Dyspnoea [Unknown]
  - Irritability [Unknown]
  - Asthenia [Unknown]
  - Drug hypersensitivity [Unknown]
  - Back pain [Unknown]
  - Dizziness [Unknown]
